FAERS Safety Report 5693120-5 (Version None)
Quarter: 2008Q2

REPORT INFORMATION
  Report Type: 
  Country: None (occurrence: None)
  Receive Date: 20080402
  Receipt Date: 20080402
  Transmission Date: 20081010
  Serious: Yes (Other)
  Sender: FDA-Public Use
  Company Number: None

PATIENT
  Age: 56 Year
  Sex: Female
  Weight: 72.5755 kg

DRUGS (6)
  1. KEPPRA [Suspect]
     Indication: MIGRAINE
     Dosage: 500MG TWICE DAILY PO
     Route: 048
     Dates: start: 20080118, end: 20080129
  2. ACETAMINOPHEN AND HYDROCODONE BITARTRATE [Concomitant]
  3. ZOLPIDEM [Concomitant]
  4. FOSAMAX [Concomitant]
  5. VITAMIN + MINERAL SUPPLEMENT [Concomitant]
  6. FISH OIL OMEGA [Concomitant]

REACTIONS (8)
  - AGITATION [None]
  - BONE PAIN [None]
  - CRYING [None]
  - DEPRESSION [None]
  - DIZZINESS [None]
  - FEELINGS OF WORTHLESSNESS [None]
  - HALLUCINATION, VISUAL [None]
  - MORBID THOUGHTS [None]
